FAERS Safety Report 6673626-2 (Version None)
Quarter: 2010Q1

REPORT INFORMATION
  Report Type: 
  Country: None (occurrence: None)
  Receive Date: 20100329
  Receipt Date: 20090807
  Transmission Date: 20100710
  Serious: Yes (Other)
  Sender: FDA-Public Use
  Company Number: 2009220110

PATIENT
  Age: 38 Year
  Sex: Male

DRUGS (1)
  1. GEODON [Suspect]
     Dosage: 20 MG, 2X/DAY

REACTIONS (1)
  - ELECTROCARDIOGRAM QT PROLONGED [None]
